FAERS Safety Report 10662116 (Version 3)
Quarter: 2015Q1

REPORT INFORMATION
  Report Type: Spontaneous
  Country: US (occurrence: US)
  Receive Date: 20141218
  Receipt Date: 20150204
  Transmission Date: 20150720
  Serious: No
  Sender: FDA-Public Use
  Company Number: US-PFIZER INC-2014343141

PATIENT
  Age: 78 Year
  Sex: Female
  Weight: 82 kg

DRUGS (18)
  1. LYRICA [Suspect]
     Active Substance: PREGABALIN
     Dosage: 100 MG (TWO 50MG CAPSULES), 3X/DAY
  2. BABY ASPIRIN [Concomitant]
     Active Substance: ASPIRIN
     Dosage: UNK UNK, 1X/DAY
  3. LYRICA [Suspect]
     Active Substance: PREGABALIN
     Dosage: 100 MG, 3X/DAY
  4. VITAMIN D [Concomitant]
     Active Substance: CHOLECALCIFEROL
     Dosage: 1000 UNK, 2X/DAY
  5. HUMALOG [Concomitant]
     Active Substance: INSULIN LISPRO
     Dosage: 75/25, 2X/DAY (TURN TO 10, INJECT IN STOMACH)
  6. VITAMIN D [Concomitant]
     Active Substance: CHOLECALCIFEROL
     Dosage: 2000 (1000 TWO) UNK, 2X/DAY
  7. LYRICA [Suspect]
     Active Substance: PREGABALIN
     Indication: NEUROPATHY PERIPHERAL
     Dosage: 200 MG, DAILY
     Dates: start: 201411
  8. LYRICA [Suspect]
     Active Substance: PREGABALIN
     Dosage: 300 MG, DAILY (SPACED OUT OVER THE DAY WITH 50MG CAPSULES)
     Dates: start: 2014
  9. BYDUREON [Concomitant]
     Active Substance: EXENATIDE
     Dosage: UNK, WEEKLY (SHOT ONCE A WEEK IN STOMACH)
  10. BYDUREON [Concomitant]
     Active Substance: EXENATIDE
     Dosage: UNK, WEEKLY (SHOT ONCE A WEEK IN STOMACH)
  11. LISINOPRIL. [Concomitant]
     Active Substance: LISINOPRIL
     Dosage: 20 MG, 1X/DAY
  12. ASPIRIN. [Concomitant]
     Active Substance: ASPIRIN
     Dosage: 81 MG, 1X/DAY
  13. FISH OIL OMEGA 3 [Concomitant]
     Dosage: 3 UNK, 2X/DAY
  14. CINNAMON. [Concomitant]
     Active Substance: CINNAMON
     Dosage: 500 MG, 2X/DAY
  15. DURAN [Concomitant]
     Indication: DIABETES MELLITUS
     Dosage: UNK, WEEKLY (ONCE A WEEK IN STOMACH)
  16. METFORMIN [Concomitant]
     Active Substance: METFORMIN HYDROCHLORIDE
     Indication: DIABETES MELLITUS
     Dosage: 1000 MG, 2X/DAY
  17. HYDROCHLORZIDE [Concomitant]
     Active Substance: HYDROCHLOROTHIAZIDE
     Dosage: 25 MG, 1X/DAY
  18. MAGNESIUM [Concomitant]
     Active Substance: MAGNESIUM
     Dosage: 250 MG, 1X/DAY

REACTIONS (7)
  - Somnolence [Not Recovered/Not Resolved]
  - Dry mouth [Not Recovered/Not Resolved]
  - Mood swings [Unknown]
  - Irritability [Unknown]
  - Drug ineffective [Unknown]
  - Vision blurred [Not Recovered/Not Resolved]
  - Personality change [Unknown]

NARRATIVE: CASE EVENT DATE: 2014
